FAERS Safety Report 5267526-2 (Version None)
Quarter: 2007Q1

REPORT INFORMATION
  Report Type: 
  Country: None (occurrence: None)
  Receive Date: 20061213
  Receipt Date: 20030902
  Transmission Date: 20070707
  Serious: Yes (Hospitalization)
  Sender: FDA-Public Use
  Company Number: 2003UW09791

PATIENT
  Age: 61 Year
  Sex: Female
  Weight: 92.0802 kg

DRUGS (7)
  1. NOLVADEX [Suspect]
     Indication: BREAST CANCER STAGE I
     Dosage: 20 MG DAILY PO
     Route: 048
     Dates: start: 20020601, end: 20030716
  2. FOSAMAX [Concomitant]
  3. THRYOID MEDICATION [Concomitant]
  4. NAPROXEN [Concomitant]
  5. CYTOTEC [Concomitant]
  6. VITAMINS [Concomitant]
  7. QUININE SULFATE [Concomitant]

REACTIONS (1)
  - ENDOMETRIAL CANCER [None]
